FAERS Safety Report 5148937-2 (Version None)
Quarter: 2006Q4

REPORT INFORMATION
  Report Type: 
  Country: None (occurrence: None)
  Receive Date: 20061113
  Receipt Date: 20060609
  Transmission Date: 20070319
  Serious: Yes (Other)
  Sender: FDA-Public Use
  Company Number: PHEH2006US07585

PATIENT
  Age: 75 Year
  Sex: Male
  Weight: 102.95 kg

DRUGS (10)
  1. LISINOPRIL [Concomitant]
     Indication: HYPERTENSION
     Dosage: 5 MG, QD
     Route: 048
     Dates: end: 20060719
  2. LISINOPRIL [Concomitant]
     Dosage: 10 MG, QD
     Route: 048
     Dates: start: 20060719
  3. GLEEVEC [Suspect]
     Indication: CHRONIC MYELOID LEUKAEMIA
     Dosage: 400 MG, UNK
     Route: 048
     Dates: start: 20060417
  4. PROSCAR [Concomitant]
     Dosage: UNK, BIW
     Route: 048
  5. ACETYLSALICYLIC ACID SRT [Concomitant]
     Dosage: 81 MG, QD
     Route: 048
  6. VITAMIN CAP [Concomitant]
     Dosage: 1 DF, QD
     Route: 048
  7. LIPITOR [Concomitant]
     Indication: HYPERCHOLESTEROLAEMIA
     Dosage: UNK, UNK
     Route: 048
     Dates: end: 20060401
  8. LIPITOR [Concomitant]
     Dosage: 10 MG, QD
     Route: 048
     Dates: start: 20060701
  9. ALLOPURINOL [Concomitant]
     Route: 048
     Dates: end: 20060101
  10. FLONASE [Concomitant]
     Dosage: 1-2 DF QD
     Dates: start: 20060101

REACTIONS (10)
  - CARDIOMYOPATHY [None]
  - DYSPNOEA [None]
  - EJECTION FRACTION DECREASED [None]
  - EOSINOPHILIA [None]
  - FATIGUE [None]
  - MITRAL VALVE INCOMPETENCE [None]
  - PRURITUS [None]
  - RASH VESICULAR [None]
  - SINUS TACHYCARDIA [None]
  - TRICUSPID VALVE INCOMPETENCE [None]
